FAERS Safety Report 4830334-8 (Version None)
Quarter: 2005Q4

REPORT INFORMATION
  Report Type: 
  Country: None (occurrence: None)
  Receive Date: 20051114
  Receipt Date: 20051104
  Transmission Date: 20060501
  Serious: Yes (Other)
  Sender: FDA-Public Use
  Company Number: USA0509109458

PATIENT
  Age: 33 Year
  Sex: Female
  Weight: 68 kg

DRUGS (1)
  1. CYMBALTA [Suspect]
     Indication: DEPRESSION
     Dosage: 30 MG
     Dates: start: 20050812, end: 20050826

REACTIONS (4)
  - HEADACHE [None]
  - HYPERTENSION [None]
  - NAUSEA [None]
  - VOMITING [None]
